FAERS Safety Report 6431407-9 (Version None)
Quarter: 2009Q4

REPORT INFORMATION
  Report Type: 
  Country: None (occurrence: None)
  Receive Date: 20091106
  Receipt Date: 20091029
  Transmission Date: 20100525
  Serious: Yes (Death, Life-Threatening, Other)
  Sender: FDA-Public Use
  Company Number: PHHY2009JP15628

PATIENT
  Sex: Male
  Weight: 64 kg

DRUGS (1)
  1. GLEEVEC [Suspect]
     Indication: GASTROINTESTINAL STROMAL TUMOUR
     Dosage: 400 MG/DAY
     Route: 048
     Dates: start: 20090205, end: 20090317

REACTIONS (8)
  - DEPENDENCE ON RESPIRATOR [None]
  - DYSPNOEA [None]
  - ENDOTRACHEAL INTUBATION [None]
  - INTERSTITIAL LUNG DISEASE [None]
  - MECHANICAL VENTILATION [None]
  - PNEUMONIA BACTERIAL [None]
  - PULMONARY FIBROSIS [None]
  - TRACHEOSTOMY [None]
